FAERS Safety Report 6842842-9 (Version None)
Quarter: 2010Q3

REPORT INFORMATION
  Report Type: 
  Country: None (occurrence: None)
  Receive Date: 20100714
  Receipt Date: 20070808
  Transmission Date: 20110219
  Serious: No
  Sender: FDA-Public Use
  Company Number: US-PFIZER INC-2007066308

PATIENT
  Sex: Male
  Weight: 81.818 kg

DRUGS (5)
  1. CHANTIX [Suspect]
     Indication: SMOKING CESSATION THERAPY
     Route: 048
     Dates: start: 20070601
  2. LIPITOR [Concomitant]
  3. METFORMIN/PIOGLITAZONE [Concomitant]
  4. BENAZEPRIL HYDROCHLORIDE [Concomitant]
  5. ANTITHROMBOTIC AGENTS [Concomitant]

REACTIONS (1)
  - RASH PRURITIC [None]
